FAERS Safety Report 9075014 (Version 1)
Quarter: 2013Q1

REPORT INFORMATION
  Report Type: Spontaneous
  Country: FR (occurrence: FR)
  Receive Date: 20130129
  Receipt Date: 20130129
  Transmission Date: 20140127
  Serious: Yes (Hospitalization)
  Sender: FDA-Public Use
  Company Number: FR-VERTEX PHARMACEUTICALS INC.-2013-001179

PATIENT
  Age: 62 Year
  Sex: Female
  Weight: 79 kg

DRUGS (10)
  1. INCIVO [Suspect]
     Indication: HEPATITIS C
     Dosage: DOSAGE FORM: TABLET
     Route: 048
     Dates: start: 20120920, end: 20121115
  2. RIBAVIRIN [Suspect]
     Indication: HEPATITIS C
     Dosage: DOSAGE FORM: UNSPECIFIED
     Route: 048
     Dates: start: 20120920, end: 20121115
  3. PEGINTERFERON ALFA 2A [Suspect]
     Indication: CHRONIC HEPATITIS C
     Dosage: DOSAGE FORM: UNSPECIFIED
     Route: 058
     Dates: start: 20120920, end: 20121115
  4. LERCAN [Concomitant]
     Indication: HYPERTENSION
     Dosage: DOSAGE FORM: UNKNOWN
     Route: 048
  5. KENZEN [Concomitant]
     Indication: HYPERTENSION
     Dosage: DOSAGE FORM: UNKNOWN
     Route: 048
  6. LEVOTHYROX [Concomitant]
     Indication: HYPOTHYROIDISM
     Dosage: DOSAGE FORM: UNKNOWN
     Route: 048
  7. NOVOMIX [Concomitant]
     Indication: DIABETES MELLITUS
     Dosage: DOSAGE FORM: UNKNOWN
     Route: 058
  8. COVERSYL [Concomitant]
     Indication: HYPERTENSION
     Dosage: DOSAGE FORM: UNKNOWN
     Route: 048
  9. SERETIDE [Concomitant]
     Dosage: DOSAGE FORM: UNKNOWN
     Route: 065
  10. KARDEGIC [Concomitant]
     Dosage: DOSAGE FORM: UNKNOWN
     Route: 065

REACTIONS (5)
  - Cerebrovascular accident [Not Recovered/Not Resolved]
  - Oral fungal infection [Unknown]
  - Bacteraemia [Unknown]
  - Tachycardia [Unknown]
  - Oral herpes [Unknown]
